FAERS Safety Report 20098840 (Version 3)
Quarter: 2021Q4

REPORT INFORMATION
  Report Type: Spontaneous
  Country: JP (occurrence: JP)
  Receive Date: 20211122
  Receipt Date: 20211213
  Transmission Date: 20220303
  Serious: Yes (Other)
  Sender: FDA-Public Use
  Company Number: JP-CELGENE-JPN-20211104987

PATIENT
  Age: 74 Year
  Sex: Male
  Weight: 54 kg

DRUGS (6)
  1. ABRAXANE [Suspect]
     Active Substance: PACLITAXEL
     Indication: Non-small cell lung cancer
     Route: 041
     Dates: start: 20210625
  2. ABRAXANE [Suspect]
     Active Substance: PACLITAXEL
     Dosage: DOSE NOT?REPORTED,?REDUCED TO?80% DOSE, ON?DAYS 1, 8, AND?15 OF EACH 28-?DAY CYCLE,?CYCLE 4, 10?DOSI
     Route: 041
     Dates: start: 20210924, end: 20211001
  3. TECENTRIQ [Concomitant]
     Active Substance: ATEZOLIZUMAB
     Indication: Non-small cell lung cancer
     Dosage: 1200 MILLIGRAM
     Route: 041
     Dates: start: 20210625, end: 20210924
  4. CARBOPLATIN [Concomitant]
     Active Substance: CARBOPLATIN
     Indication: Non-small cell lung cancer
     Dosage: 4 CYCLES
     Route: 041
     Dates: start: 20210625, end: 20210924
  5. CLONAZEPAM [Concomitant]
     Active Substance: CLONAZEPAM
     Indication: Product used for unknown indication
     Route: 048
     Dates: end: 20211129
  6. CYANOCOBALAMIN\PYRIDOXINE HYDROCHLORIDE\THIAMINE [Concomitant]
     Active Substance: CYANOCOBALAMIN\PYRIDOXINE HYDROCHLORIDE\THIAMINE
     Indication: Product used for unknown indication
     Route: 048
     Dates: end: 20211129

REACTIONS (2)
  - Infusion related reaction [Recovered/Resolved]
  - Chills [Unknown]

NARRATIVE: CASE EVENT DATE: 20211001
